FAERS Safety Report 6426570-X (Version None)
Quarter: 2009Q4

REPORT INFORMATION
  Report Type: 
  Country: None (occurrence: None)
  Receive Date: 20091030
  Receipt Date: 20091028
  Transmission Date: 20100525
  Serious: Yes (Death)
  Sender: FDA-Public Use
  Company Number: GB-EBEWE-1582ETOPMTX09 F/U 1

PATIENT
  Age: 13 Year
  Sex: Male

DRUGS (8)
  1. METHOTREXATE [Suspect]
     Indication: T-CELL LYMPHOMA
     Dates: start: 20090713, end: 20090713
  2. CYCLOPHOSPHAMIDE [Suspect]
     Indication: NON-HODGKIN'S LYMPHOMA
     Dosage: 300 MG/M2
     Dates: start: 20090715, end: 20090719
  3. DEXAMETHASONE [Concomitant]
  4. CRISANTAOPASE [Concomitant]
  5. ETOPOSIDE [Concomitant]
  6. CLOFARABINE [Concomitant]
  7. NELARABINE [Concomitant]
  8. VINCRISTINE [Concomitant]

REACTIONS (1)
  - DISEASE PROGRESSION [None]
